FAERS Safety Report 14227532 (Version 1)
Quarter: 2017Q4

REPORT INFORMATION
  Report Type: Spontaneous
  Country: GB (occurrence: GB)
  Receive Date: 20171127
  Receipt Date: 20171127
  Transmission Date: 20180321
  Serious: Yes (Hospitalization)
  Sender: FDA-Public Use
  Company Number: PHHY2017GB170308

PATIENT
  Sex: Female
  Weight: 3.2 kg

DRUGS (5)
  1. IMMUNOGLOBULINS NOS [Concomitant]
     Active Substance: IMMUNE GLOBULIN NOS
     Indication: FOETAL EXPOSURE DURING PREGNANCY
     Dosage: 500 MG, QD (MOTHER DOSE)
     Route: 064
     Dates: start: 20170501
  2. REVOLADE [Suspect]
     Active Substance: ELTROMBOPAG
     Indication: FOETAL EXPOSURE DURING PREGNANCY
     Dosage: MOTHER DOSE (75 MG)
     Route: 064
     Dates: start: 20160301, end: 20170320
  3. PENICILLIN V [Suspect]
     Active Substance: PENICILLIN V
     Dosage: 500 MG, QID (MOTHER DOSE)
     Route: 064
     Dates: start: 20170401
  4. TRANEXAMIC ACID. [Concomitant]
     Active Substance: TRANEXAMIC ACID
     Indication: FOETAL EXPOSURE DURING PREGNANCY
     Dosage: 500 MG, QD (MOTHER DOSE)
     Route: 064
     Dates: start: 20170504
  5. PENICILLIN V [Suspect]
     Active Substance: PENICILLIN V
     Indication: FOETAL EXPOSURE DURING PREGNANCY
     Dosage: (MOTHER DOSE)250 MG, BID
     Route: 064
     Dates: start: 2001

REACTIONS (4)
  - Foetal exposure during pregnancy [Unknown]
  - Platelet count decreased [Unknown]
  - Respiratory distress [Recovered/Resolved]
  - Thrombocytopenia neonatal [Recovered/Resolved]

NARRATIVE: CASE EVENT DATE: 20171011
